FAERS Safety Report 19498310 (Version 2)
Quarter: 2021Q4

REPORT INFORMATION
  Report Type: Report from Study
  Country: IE (occurrence: IE)
  Receive Date: 20210706
  Receipt Date: 20211011
  Transmission Date: 20220303
  Serious: Yes (Other)
  Sender: FDA-Public Use
  Company Number: IE-SAARTEMIS-SAC202003270002

PATIENT
  Age: 43 Year
  Sex: Male

DRUGS (4)
  1. AGALSIDASE BETA [Suspect]
     Active Substance: AGALSIDASE BETA
     Indication: Fabry^s disease
     Dosage: 70 MG, QOW
     Route: 041
     Dates: start: 20200325
  2. CHLORPHENIRAMINE MALEATE [Suspect]
     Active Substance: CHLORPHENIRAMINE MALEATE
     Dosage: UNK, UNK
     Route: 065
  3. LOSEC [Concomitant]
     Active Substance: OMEPRAZOLE
     Dosage: 30 MG, QD
     Route: 050
  4. ACETAMINOPHEN [Concomitant]
     Active Substance: ACETAMINOPHEN
     Dosage: 1 G, PRN
     Route: 050

REACTIONS (9)
  - Hallucination [Unknown]
  - Nervous system disorder [Recovered/Resolved]
  - Insomnia [Recovered/Resolved]
  - Rash macular [Unknown]
  - Blood pressure increased [Unknown]
  - Dizziness [Unknown]
  - Burning sensation [Unknown]
  - Fatigue [Recovered/Resolved]
  - Malaise [Unknown]

NARRATIVE: CASE EVENT DATE: 20200318
